FAERS Safety Report 14005410 (Version 1)
Quarter: 2017Q3

REPORT INFORMATION
  Report Type: Spontaneous
  Country: GB (occurrence: GB)
  Receive Date: 20170922
  Receipt Date: 20170922
  Transmission Date: 20171128
  Serious: Yes (Other)
  Sender: FDA-Public Use
  Company Number: GB-TORRENT-00015621

PATIENT
  Age: 3 Year
  Sex: Female
  Weight: 12 kg

DRUGS (6)
  1. GAVISCON [Concomitant]
     Active Substance: ALUMINUM HYDROXIDE\MAGNESIUM CARBONATE
  2. MONTELUKAST [Suspect]
     Active Substance: MONTELUKAST SODIUM
  3. CHLORPHENAMINE [Concomitant]
     Active Substance: CHLORPHENIRAMINE MALEATE
  4. CLENIL MODULITE [Concomitant]
     Active Substance: BECLOMETHASONE DIPROPIONATE
  5. VENTOLIN [Concomitant]
     Active Substance: ALBUTEROL SULFATE
  6. PREDNISOLONE. [Concomitant]
     Active Substance: PREDNISOLONE

REACTIONS (3)
  - Hallucination [Recovering/Resolving]
  - Somnambulism [Recovered/Resolved]
  - Hyperkinesia [Recovered/Resolved]

NARRATIVE: CASE EVENT DATE: 20170904
